FAERS Safety Report 5355782-1 (Version None)
Quarter: 2007Q2

REPORT INFORMATION
  Report Type: 
  Country: None (occurrence: None)
  Receive Date: 20070613
  Receipt Date: 20070608
  Transmission Date: 20071010
  Serious: Yes (Hospitalization)
  Sender: FDA-Public Use
  Company Number: FR-MERCK-0706FRA00031

PATIENT
  Age: 92 Year
  Sex: Female

DRUGS (8)
  1. SINGULAIR [Suspect]
     Indication: ASTHMA
     Route: 048
     Dates: end: 20070203
  2. BUDESONIDE AND FORMOTEROL FUMARATE [Suspect]
     Indication: ASTHMA
     Dates: end: 20070203
  3. OMEPRAZOLE [Suspect]
     Route: 048
     Dates: end: 20070203
  4. MESALAMINE [Concomitant]
     Indication: COLITIS
     Route: 048
  5. SOTALOL HYDROCHLORIDE [Concomitant]
     Indication: HYPERTENSION
     Route: 048
  6. NICORANDIL [Concomitant]
     Route: 048
  7. FUROSEMIDE [Concomitant]
     Indication: HYPERTENSION
     Route: 048
  8. POTASSIUM CHLORIDE [Concomitant]
     Route: 048

REACTIONS (2)
  - HYPONATRAEMIA [None]
  - MALAISE [None]
